FAERS Safety Report 7823097-5 (Version None)
Quarter: 2011Q4

REPORT INFORMATION
  Report Type: 
  Country: None (occurrence: None)
  Receive Date: 20111019
  Receipt Date: 20111013
  Transmission Date: 20120403
  Serious: Yes (Hospitalization, Other)
  Sender: FDA-Public Use
  Company Number: NL-BIOGENIDEC-2011BI028012

PATIENT
  Age: 31 Year
  Sex: Male

DRUGS (6)
  1. CARBAMAZEPINE [Concomitant]
     Indication: EPILEPSY
     Route: 048
  2. FURADANTIN [Concomitant]
  3. SYMMETREL [Concomitant]
  4. VESICARE [Concomitant]
  5. FERROGRADUMET [Concomitant]
  6. TYSABRI [Suspect]
     Indication: RELAPSING-REMITTING MULTIPLE SCLEROSIS
     Route: 042
     Dates: start: 20080122

REACTIONS (1)
  - CONVULSION [None]
